FAERS Safety Report 22043787 (Version 2)
Quarter: 2023Q1

REPORT INFORMATION
  Report Type: Spontaneous
  Country: US (occurrence: US)
  Receive Date: 20230228
  Receipt Date: 20230322
  Transmission Date: 20230418
  Serious: No
  Sender: FDA-Public Use
  Company Number: US-UNITED THERAPEUTICS-UNT-2023-005111

PATIENT
  Sex: Male
  Weight: 104.31 kg

DRUGS (6)
  1. REMODULIN [Suspect]
     Active Substance: TREPROSTINIL
     Indication: Pulmonary arterial hypertension
     Dosage: 0.0672 ?G/KG, CONTINUING
     Route: 058
  2. REMODULIN [Suspect]
     Active Substance: TREPROSTINIL
     Dosage: UNK, CONTINUING
     Route: 058
     Dates: start: 202111
  3. REMODULIN [Suspect]
     Active Substance: TREPROSTINIL
     Indication: Pulmonary arterial hypertension
     Dosage: 0.072 ?G/KG, CONTINUING (SELF-FILLED CASSETTE WITH 3 ML; PUMP RATE OF 44 MCL PER HOUR)
     Route: 058
  4. PRILOCAINE [Suspect]
     Active Substance: PRILOCAINE
     Indication: Infusion site pain
     Dosage: UNK, CONTINUING
     Route: 065
  5. LIDOCAINE [Suspect]
     Active Substance: LIDOCAINE
     Indication: Infusion site pain
     Dosage: UNK, CONTINUING
     Route: 065
  6. SILDENAFIL [Concomitant]
     Active Substance: SILDENAFIL
     Indication: Product used for unknown indication
     Dosage: UNK
     Route: 065

REACTIONS (11)
  - Infusion site reaction [Unknown]
  - Infusion site extravasation [Unknown]
  - Device maintenance issue [Unknown]
  - Device dislocation [Unknown]
  - Infusion site pain [Unknown]
  - Therapy non-responder [Unknown]
  - Product adhesion issue [Unknown]
  - Product administration interrupted [Recovered/Resolved]
  - Headache [Unknown]
  - Diarrhoea [Not Recovered/Not Resolved]
  - Dizziness [Unknown]
